FAERS Safety Report 4538642-5 (Version None)
Quarter: 2004Q4

REPORT INFORMATION
  Report Type: 
  Country: None (occurrence: None)
  Receive Date: 20041227
  Receipt Date: 20041215
  Transmission Date: 20050328
  Serious: Yes (Disabling)
  Sender: FDA-Public Use
  Company Number: JP-JNJFOC-20041102784

PATIENT
  Age: 68 Year
  Sex: Male

DRUGS (2)
  1. OFLOCET [Suspect]
     Dates: start: 20020901, end: 20030215
  2. OFLOCET [Suspect]
     Indication: PROSTATITIS
     Dates: start: 20020901, end: 20030215

REACTIONS (9)
  - BLOOD IMMUNOGLOBULIN M DECREASED [None]
  - DIFFICULTY IN WALKING [None]
  - FLATULENCE [None]
  - GROIN PAIN [None]
  - HAPTOGLOBIN DECREASED [None]
  - MYALGIA [None]
  - NECK PAIN [None]
  - PAIN IN EXTREMITY [None]
  - TENDONITIS [None]
